FAERS Safety Report 17570080 (Version 7)
Quarter: 2022Q1

REPORT INFORMATION
  Report Type: Spontaneous
  Country: PT (occurrence: PT)
  Receive Date: 20200323
  Receipt Date: 20220324
  Transmission Date: 20220423
  Serious: Yes (Other)
  Sender: FDA-Public Use
  Company Number: PT-AUROBINDO-AUR-APL-2020-014210

PATIENT
  Age: 61 Year
  Sex: Male

DRUGS (5)
  1. METFORMIN [Suspect]
     Active Substance: METFORMIN HYDROCHLORIDE
     Indication: Diabetes mellitus
     Dosage: UNK
     Route: 065
  2. DULAGLUTIDE [Suspect]
     Active Substance: DULAGLUTIDE
     Indication: Diabetes mellitus
     Dosage: UNK
     Route: 065
  3. INSULIN NOS [Suspect]
     Active Substance: INSULIN NOS
     Indication: Diabetes mellitus
     Dosage: UNK, WAS RESTARTED
     Route: 065
  4. INSULIN GLARGINE [Suspect]
     Active Substance: INSULIN GLARGINE
     Indication: Diabetes mellitus
     Dosage: UNK
     Route: 065
  5. INSULIN GLARGINE [Suspect]
     Active Substance: INSULIN GLARGINE
     Dosage: UNK, WAS RESTARTED
     Route: 065

REACTIONS (9)
  - Blood glucose increased [Unknown]
  - Diabetes mellitus inadequate control [Unknown]
  - Product administration error [Unknown]
  - Therapeutic product effect incomplete [Unknown]
  - Gastrointestinal disorder [Recovered/Resolved]
  - Genitourinary symptom [Unknown]
  - Urinary tract disorder [Recovered/Resolved]
  - Treatment noncompliance [Unknown]
  - Drug ineffective [Recovering/Resolving]
